FAERS Safety Report 8271281-1 (Version None)
Quarter: 2012Q2

REPORT INFORMATION
  Report Type: 
  Country: None (occurrence: None)
  Receive Date: 20120406
  Receipt Date: 20120321
  Transmission Date: 20120825
  Serious: Yes (Hospitalization, Other)
  Sender: FDA-Public Use
  Company Number: VAL_00738_2012

PATIENT
  Age: 83 Year
  Sex: Female
  Weight: 40 kg

DRUGS (3)
  1. HANP [Concomitant]
  2. ALBUMIN (HUMAN) [Concomitant]
  3. ROCALTROL [Suspect]
     Indication: PRODUCT USED FOR UNKNOWN INDICATION
     Dosage: (DF ORAL)
     Route: 048
     Dates: end: 20110314

REACTIONS (8)
  - AORTIC VALVE STENOSIS [None]
  - HYPERCALCAEMIA [None]
  - RESPIRATORY DISORDER [None]
  - PLEURAL EFFUSION [None]
  - NAUSEA [None]
  - CARDIAC FAILURE CONGESTIVE [None]
  - WEIGHT INCREASED [None]
  - DECREASED APPETITE [None]
